FAERS Safety Report 4437496-5 (Version None)
Quarter: 2004Q3

REPORT INFORMATION
  Report Type: 
  Country: None (occurrence: None)
  Receive Date: 20040831
  Receipt Date: 20040823
  Transmission Date: 20050211
  Serious: Yes (Hospitalization, Other)
  Sender: FDA-Public Use
  Company Number: US-JNJFOC-20040807829

PATIENT
  Sex: Female

DRUGS (6)
  1. INFLIXIMAB [Suspect]
     Indication: RHEUMATOID ARTHRITIS
     Route: 042
  2. METHOTREXATE [Concomitant]
  3. PREDNISONE [Concomitant]
     Dosage: IN SEP-03 DOSAGE REDUCED BY 10-20 MG EVERY WEEK UNTIL SHE WAS TAKING 10-20 MG DAILY
  4. ELAVIL [Concomitant]
  5. ACIPHEX [Concomitant]
  6. ANTIBIOTICS [Concomitant]

REACTIONS (2)
  - STAPHYLOCOCCAL INFECTION [None]
  - SYSTEMIC LUPUS ERYTHEMATOSUS [None]
